FAERS Safety Report 8490656-9 (Version None)
Quarter: 2012Q3

REPORT INFORMATION
  Report Type: 
  Country: None (occurrence: None)
  Receive Date: 20120705
  Receipt Date: 20120627
  Transmission Date: 20120928
  Serious: Yes (Disabling, Other)
  Sender: FDA-Public Use
  Company Number: US-CELGENEUS-163-21880-12041335

PATIENT
  Sex: Male

DRUGS (7)
  1. LASIX [Concomitant]
     Indication: ASCITES
     Route: 048
  2. MIDODRINE HYDROCHLORIDE [Concomitant]
     Route: 065
  3. REVLIMID [Suspect]
     Indication: MULTIPLE MYELOMA
     Dosage: 25 MILLIGRAM
     Route: 048
     Dates: start: 20111106
  4. GABAPENTIN [Concomitant]
     Route: 065
  5. DEXAMETHASONE SODIUM PHOSPHATE [Concomitant]
     Route: 065
  6. FAMOTIDINE [Concomitant]
     Route: 065
  7. SPIRONOLACTONE [Concomitant]
     Indication: ASCITES
     Route: 048

REACTIONS (3)
  - HEPATIC CIRRHOSIS [None]
  - ABDOMINAL PAIN [None]
  - DIARRHOEA [None]
